FAERS Safety Report 9334775 (Version 1)
Quarter: 2013Q2

REPORT INFORMATION
  Report Type: Spontaneous
  Country: CH (occurrence: CH)
  Receive Date: 20130606
  Receipt Date: 20130606
  Transmission Date: 20140414
  Serious: Yes (Life-Threatening, Disabling, Other)
  Sender: FDA-Public Use
  Company Number: CH-BAXTER-2013BAX020226

PATIENT
  Age: 67 Year
  Sex: Female

DRUGS (12)
  1. SEVOFLURANE BAXTER [Suspect]
     Indication: GENERAL ANAESTHESIA
     Route: 055
     Dates: start: 20130225, end: 20130225
  2. PROPOFOL [Suspect]
     Indication: PRODUCT USED FOR UNKNOWN INDICATION
     Route: 040
     Dates: start: 20130225, end: 20130225
  3. ZINACEF [Suspect]
     Indication: PROPHYLAXIS
     Route: 065
     Dates: start: 20130225, end: 20130225
  4. METRONIDAZOLE [Suspect]
     Indication: PROPHYLAXIS
     Route: 065
     Dates: start: 20130225, end: 20130225
  5. PANADOL EXTEND [Suspect]
     Indication: PROPHYLAXIS
     Route: 048
     Dates: start: 20130225, end: 20130301
  6. CLEXANE [Suspect]
     Indication: PROPHYLAXIS
     Dosage: 100 MG/ML
     Route: 065
     Dates: start: 20130225, end: 20130228
  7. PASPERTIN [Suspect]
     Indication: PRODUCT USED FOR UNKNOWN INDICATION
     Dosage: ONCE
     Route: 048
  8. MOVICOL [Suspect]
     Indication: PRODUCT USED FOR UNKNOWN INDICATION
     Route: 065
  9. NOVALGIN [Suspect]
     Indication: PRODUCT USED FOR UNKNOWN INDICATION
     Route: 048
     Dates: start: 20130227
  10. BUPIVACAINE [Suspect]
     Indication: PRODUCT USED FOR UNKNOWN INDICATION
     Route: 041
     Dates: start: 20120226, end: 20130228
  11. FENTANYL [Suspect]
     Indication: PRODUCT USED FOR UNKNOWN INDICATION
     Route: 041
     Dates: start: 20120226, end: 20130228
  12. GLUCOSALINA [Suspect]
     Indication: PRODUCT USED FOR UNKNOWN INDICATION
     Route: 041
     Dates: start: 20120226, end: 20130228

REACTIONS (2)
  - Hepatitis cholestatic [Recovering/Resolving]
  - Liver disorder [Recovering/Resolving]
